FAERS Safety Report 7480879-X (Version None)
Quarter: 2011Q2

REPORT INFORMATION
  Report Type: 
  Country: None (occurrence: None)
  Receive Date: 20110516
  Receipt Date: 20110506
  Transmission Date: 20111010
  Serious: Yes (Other)
  Sender: FDA-Public Use
  Company Number: PHFR2011GB02618

PATIENT
  Sex: Male
  Weight: 71.1 kg

DRUGS (5)
  1. CLOZARIL [Suspect]
     Dosage: 450 MG, QD
     Route: 048
     Dates: start: 20110330
  2. ZOPICLONE [Concomitant]
     Indication: INSOMNIA
     Dosage: 3.75 MG, PRN
     Route: 048
  3. CLOZARIL [Suspect]
     Dosage: 500 MG, QD
     Route: 048
     Dates: start: 20110325, end: 20110330
  4. LORAZEPAM [Concomitant]
     Indication: AGITATION
     Dosage: 1 MG, PRN
     Route: 048
     Dates: start: 20110309
  5. CLOZARIL [Suspect]
     Indication: SCHIZOPHRENIA
     Dosage: 400 MG, QD
     Route: 048
     Dates: start: 20110221

REACTIONS (3)
  - ELECTROCARDIOGRAM ABNORMAL [None]
  - ANTIPSYCHOTIC DRUG LEVEL BELOW THERAPEUTIC [None]
  - ELECTROCARDIOGRAM QT PROLONGED [None]
